FAERS Safety Report 6855645-6 (Version None)
Quarter: 2010Q3

REPORT INFORMATION
  Report Type: 
  Country: None (occurrence: None)
  Receive Date: 20100719
  Receipt Date: 20100712
  Transmission Date: 20110219
  Serious: Yes (Other)
  Sender: FDA-Public Use
  Company Number: AU-SP-2010-03094

PATIENT
  Sex: Female
  Weight: 53 kg

DRUGS (2)
  1. MERIEUX INACTIVATED RABIES VACCINE [Suspect]
     Indication: IMMUNISATION
     Route: 030
     Dates: start: 20100518, end: 20100518
  2. IMOGAM RABIES PASTEURIZED [Suspect]
     Indication: IMMUNISATION
     Route: 030
     Dates: start: 20100507, end: 20100507

REACTIONS (2)
  - ABORTION SPONTANEOUS [None]
  - DRUG EXPOSURE DURING PREGNANCY [None]
